FAERS Safety Report 16207742 (Version 3)
Quarter: 2019Q3

REPORT INFORMATION
  Report Type: Spontaneous
  Country: BR (occurrence: BR)
  Receive Date: 20190417
  Receipt Date: 20190816
  Transmission Date: 20191004
  Serious: Yes (Hospitalization)
  Sender: FDA-Public Use
  Company Number: BR-GLAXOSMITHKLINE-BR2019GSK033219

PATIENT
  Sex: Female

DRUGS (2)
  1. NUCALA [Suspect]
     Active Substance: MEPOLIZUMAB
     Indication: ASTHMA
     Dosage: 100 MG, UNK
     Dates: start: 20181113
  2. BENLYSTA [Concomitant]
     Active Substance: BELIMUMAB
     Indication: PRODUCT USED FOR UNKNOWN INDICATION
     Dosage: UNK
     Route: 042
     Dates: start: 20181214

REACTIONS (7)
  - Ill-defined disorder [Unknown]
  - Drug ineffective [Unknown]
  - Hospitalisation [Unknown]
  - Infection [Unknown]
  - Malaise [Unknown]
  - Inappropriate schedule of product administration [Recovered/Resolved]
  - Feeling abnormal [Unknown]
